FAERS Safety Report 9204117 (Version 1)
Quarter: 2013Q1

REPORT INFORMATION
  Report Type: Spontaneous
  Country: US (occurrence: None)
  Receive Date: 20120709
  Receipt Date: 20120709
  Transmission Date: 20140127
  Serious: Yes (Other)
  Sender: FDA-Public Use
  Company Number: PHEH2011US07493

PATIENT
  Sex: Female
  Weight: 39.9 kg

DRUGS (1)
  1. GLEEVEC [Suspect]
     Indication: MYELOID LEUKAEMIA
     Route: 048
     Dates: start: 20110822

REACTIONS (3)
  - Urinary tract infection [None]
  - Nausea [None]
  - Blood urine present [None]
